FAERS Safety Report 18020872 (Version 1)
Quarter: 2020Q3

REPORT INFORMATION
  Report Type: Spontaneous
  Country: NL (occurrence: NL)
  Receive Date: 20200714
  Receipt Date: 20200714
  Transmission Date: 20201103
  Serious: Yes (Other)
  Sender: FDA-Public Use
  Company Number: NL-MYLANLABS-2020M1064323

PATIENT
  Sex: Female

DRUGS (1)
  1. CLOZAPINE. [Suspect]
     Active Substance: CLOZAPINE
     Indication: DRUG THERAPY
     Route: 065

REACTIONS (10)
  - Melkersson-Rosenthal syndrome [Unknown]
  - Weight abnormal [Unknown]
  - Maternal exposure during pregnancy [Unknown]
  - Malaise [Unknown]
  - Apathy [Unknown]
  - Claustrophobia [Unknown]
  - Depressed mood [Unknown]
  - Drooling [Unknown]
  - Thinking abnormal [Unknown]
  - Increased appetite [Unknown]
